FAERS Safety Report 8533755 (Version 2)
Quarter: 2013Q3

REPORT INFORMATION
  Report Type: Spontaneous
  Country: US (occurrence: US)
  Receive Date: 20120427
  Receipt Date: 20130701
  Transmission Date: 20140515
  Serious: Yes (Other)
  Sender: FDA-Public Use
  Company Number: US-JNJFOC-20120410467

PATIENT
  Sex: Female
  Weight: 59.88 kg

DRUGS (2)
  1. ORTHO-CEPT [Suspect]
     Indication: PROPHYLAXIS
     Route: 048
     Dates: start: 201203, end: 201203
  2. ORTHO-CEPT [Suspect]
     Indication: PROPHYLAXIS
     Route: 048

REACTIONS (6)
  - Neoplasm malignant [Not Recovered/Not Resolved]
  - Multiple sclerosis [Not Recovered/Not Resolved]
  - Uterine haemorrhage [Recovered/Resolved]
  - Abnormal loss of weight [Unknown]
  - Uterine leiomyoma [Not Recovered/Not Resolved]
  - Off label use [Recovered/Resolved]
